FAERS Safety Report 19040562 (Version 1)
Quarter: 2021Q1

REPORT INFORMATION
  Report Type: Spontaneous
  Country: US (occurrence: US)
  Receive Date: 20210323
  Receipt Date: 20210323
  Transmission Date: 20210420
  Serious: No
  Sender: FDA-Public Use
  Company Number: US-UNITED THERAPEUTICS-UNT-2021-004831

PATIENT
  Sex: Female
  Weight: 81.63 kg

DRUGS (3)
  1. ADCIRCA [Concomitant]
     Active Substance: TADALAFIL
     Indication: PULMONARY ARTERIAL HYPERTENSION
     Dosage: UNK
     Route: 065
  2. REMODULIN [Suspect]
     Active Substance: TREPROSTINIL
     Indication: PULMONARY ARTERIAL HYPERTENSION
     Dosage: UNK, CONTINUING
     Route: 058
     Dates: start: 20150618
  3. REMODULIN [Suspect]
     Active Substance: TREPROSTINIL
     Dosage: 0.0716 ?G/KG, CONTINUING
     Route: 058

REACTIONS (3)
  - Device issue [Unknown]
  - Headache [Recovered/Resolved]
  - Nausea [Recovered/Resolved]
